FAERS Safety Report 5880181-3 (Version None)
Quarter: 2008Q3

REPORT INFORMATION
  Report Type: 
  Country: None (occurrence: None)
  Receive Date: 20080910
  Receipt Date: 20080910
  Transmission Date: 20090109
  Serious: No
  Sender: FDA-Public Use
  Company Number: None

PATIENT
  Age: 31 Year
  Sex: Female
  Weight: 108.4097 kg

DRUGS (1)
  1. CYMBALTA [Suspect]
     Indication: DEPRESSION
     Dosage: 90 MG 1 X A DAY PO
     Route: 048
     Dates: start: 20080201, end: 20080901

REACTIONS (2)
  - FATIGUE [None]
  - HYPERHIDROSIS [None]
